FAERS Safety Report 19959990 (Version 1)
Quarter: 2021Q4

REPORT INFORMATION
  Report Type: Spontaneous
  Country: US (occurrence: US)
  Receive Date: 20211013
  Receipt Date: 20211013
  Transmission Date: 20220303
  Serious: No
  Sender: FDA-Public Use
  Company Number: None

PATIENT
  Age: 60 Year
  Sex: Female

DRUGS (2)
  1. ENBREL [Suspect]
     Active Substance: ETANERCEPT
     Indication: Rheumatoid arthritis
     Dosage: FREQUENCY: OTHER
     Route: 058
     Dates: start: 202109
  2. ENBREL [Concomitant]
     Active Substance: ETANERCEPT

REACTIONS (5)
  - Pain in extremity [None]
  - Paraesthesia [None]
  - Pain [None]
  - Hypoaesthesia [None]
  - Sleep disorder [None]

NARRATIVE: CASE EVENT DATE: 20211006
